FAERS Safety Report 25917040 (Version 2)
Quarter: 2025Q4

REPORT INFORMATION
  Report Type: Report from Study
  Country: CA (occurrence: CA)
  Receive Date: 20251014
  Receipt Date: 20251107
  Transmission Date: 20260117
  Serious: Yes (Hospitalization)
  Sender: ROCHE
  Company Number: CA-ROCHE-10000405830

PATIENT
  Sex: Female

DRUGS (8)
  1. ACTEMRA ACTPEN [Suspect]
     Active Substance: TOCILIZUMAB
     Indication: Rheumatoid arthritis
     Dosage: DRUG DOSE FIRST ADMINISTERED IS 162 MG MILLIGRAM(S)
     Route: 058
     Dates: start: 20220628, end: 2022
  2. ACTEMRA ACTPEN [Suspect]
     Active Substance: TOCILIZUMAB
     Dosage: DRUG DOSE FIRST ADMINISTERED IS 162 MG MILLIGRAM(S)
     Route: 058
     Dates: start: 2022
  3. ENSTILAR [Concomitant]
     Active Substance: BETAMETHASONE DIPROPIONATE\CALCIPOTRIENE HYDRATE
  4. LIDOCAINE [Concomitant]
     Active Substance: LIDOCAINE
  5. OXAZEPAM [Concomitant]
     Active Substance: OXAZEPAM
  6. PMS Zopiclone [Concomitant]
  7. PULMICORT TURBUHALER [Concomitant]
     Active Substance: BUDESONIDE
  8. Teva Topisone cream [Concomitant]

REACTIONS (1)
  - Injection site abscess [Unknown]
